FAERS Safety Report 7415174-8 (Version None)
Quarter: 2011Q2

REPORT INFORMATION
  Report Type: 
  Country: None (occurrence: None)
  Receive Date: 20110414
  Receipt Date: 20110405
  Transmission Date: 20111010
  Serious: Yes (Hospitalization)
  Sender: FDA-Public Use
  Company Number: PHHY2011US27759

PATIENT
  Sex: Female
  Weight: 48 kg

DRUGS (6)
  1. AZITHROMYCIN [Concomitant]
     Indication: PSEUDOMONAS INFECTION
     Dosage: 500 MG, TID
     Route: 048
     Dates: start: 20091231
  2. PULMOZYME [Concomitant]
     Indication: CYSTIC FIBROSIS LUNG
     Dosage: 2.5 MG, QD
     Dates: start: 20090210
  3. TOBI [Suspect]
     Indication: PSEUDOMONAS INFECTION
     Dosage: 300 MG, BID, FOR 28 DAY CYCLE
     Dates: start: 20100308
  4. CREON [Concomitant]
     Indication: PANCREATIC INSUFFICIENCY
     Dosage: 4-5 TIMES WITH MEALS, 2/SNORK
     Route: 048
     Dates: start: 20100610
  5. LEVEMIR [Concomitant]
     Indication: CYSTIC FIBROSIS RELATED DIABETES
     Dosage: 22 IU, QD
     Route: 058
     Dates: start: 20100707
  6. GOLYTELY [Concomitant]

REACTIONS (2)
  - DISTAL ILEAL OBSTRUCTION SYNDROME [None]
  - UPPER RESPIRATORY TRACT INFECTION [None]
